FAERS Safety Report 20892533 (Version 2)
Quarter: 2022Q3

REPORT INFORMATION
  Report Type: Spontaneous
  Country: CA (occurrence: CA)
  Receive Date: 20220531
  Receipt Date: 20220822
  Transmission Date: 20221026
  Serious: Yes (Other)
  Sender: FDA-Public Use
  Company Number: CA-SUN PHARMACEUTICAL INDUSTRIES LTD-2021R1-312096

PATIENT
  Sex: Male

DRUGS (1)
  1. ILUMYA [Suspect]
     Active Substance: TILDRAKIZUMAB-ASMN
     Indication: Psoriasis
     Dosage: 200 MILLIGRAM, 12 WEEKS
     Route: 058
     Dates: start: 20210909

REACTIONS (4)
  - Cellulitis [Unknown]
  - Off label use [Unknown]
  - Drug ineffective [Unknown]
  - Therapy cessation [Unknown]
